FAERS Safety Report 17325096 (Version 1)
Quarter: 2020Q1

REPORT INFORMATION
  Report Type: Report from Study
  Country: IT (occurrence: IT)
  Receive Date: 20200127
  Receipt Date: 20200127
  Transmission Date: 20200409
  Serious: Yes (Other)
  Sender: FDA-Public Use
  Company Number: IT-MYLANLABS-2020M1007860

PATIENT
  Age: 51 Year
  Sex: Male

DRUGS (3)
  1. SUSTIVA [Concomitant]
     Active Substance: EFAVIRENZ
     Dosage: UNK
  2. EPIVIR [Concomitant]
     Active Substance: LAMIVUDINE
     Dosage: UNK
  3. TENOFOVIR DISOPROXIL [Suspect]
     Active Substance: TENOFOVIR DISOPROXIL
     Indication: HIV INFECTION
     Dosage: UNK
     Route: 065

REACTIONS (1)
  - Osteoporosis [Unknown]
